FAERS Safety Report 21926187 (Version 1)
Quarter: 2023Q1

REPORT INFORMATION
  Report Type: Spontaneous
  Country: JP (occurrence: JP)
  Receive Date: 20230130
  Receipt Date: 20230130
  Transmission Date: 20230417
  Serious: Yes (Other)
  Sender: FDA-Public Use
  Company Number: JP-PFIZER INC-PV202300014778

PATIENT
  Age: 46 Year
  Sex: Female
  Weight: 41 kg

DRUGS (1)
  1. METHYLPREDNISOLONE SODIUM SUCCINATE [Suspect]
     Active Substance: METHYLPREDNISOLONE SODIUM SUCCINATE
     Dosage: 1000 MG, DAILY; PULSE THERAPY
     Route: 042

REACTIONS (2)
  - Pneumonia aspiration [Unknown]
  - Off label use [Unknown]
